FAERS Safety Report 16614764 (Version 1)
Quarter: 2019Q3

REPORT INFORMATION
  Report Type: Other
  Country: AU (occurrence: AU)
  Receive Date: 20190723
  Receipt Date: 20190723
  Transmission Date: 20191004
  Serious: Yes (Other)
  Sender: FDA-Public Use
  Company Number: AU-APOTEX-2019AP018451

PATIENT
  Age: 71 Year
  Sex: Male

DRUGS (4)
  1. APO-DULOXETINE [Suspect]
     Active Substance: DULOXETINE
     Indication: FIBROMYALGIA
     Dosage: 30 MG, UNK
     Route: 048
     Dates: start: 20180918
  2. APO-DULOXETINE [Suspect]
     Active Substance: DULOXETINE
     Indication: DEPRESSION
     Dosage: 30 MG, UNK
     Route: 048
     Dates: start: 201812
  3. APO-DULOXETINE [Suspect]
     Active Substance: DULOXETINE
     Indication: ANXIETY
     Dosage: 60 MG, UNK
     Route: 048
     Dates: start: 201810
  4. APO-DULOXETINE [Suspect]
     Active Substance: DULOXETINE
     Indication: PAIN
     Dosage: REDUCING DOSAGE TO 30MG EVERY 2ND DAY
     Route: 048
     Dates: start: 20190327, end: 20190330

REACTIONS (14)
  - Photophobia [Unknown]
  - Hyperacusis [Unknown]
  - Pruritus [Unknown]
  - Headache [Not Recovered/Not Resolved]
  - Balance disorder [Not Recovered/Not Resolved]
  - Insomnia [Not Recovered/Not Resolved]
  - Fatigue [Not Recovered/Not Resolved]
  - Condition aggravated [Unknown]
  - Chills [Unknown]
  - Nightmare [Not Recovered/Not Resolved]
  - Dizziness [Not Recovered/Not Resolved]
  - Self-injurious ideation [Unknown]
  - Nausea [Unknown]
  - Depression [Recovered/Resolved]

NARRATIVE: CASE EVENT DATE: 20190330
